FAERS Safety Report 14633854 (Version 1)
Quarter: 2018Q1

REPORT INFORMATION
  Report Type: Report from Study
  Country: DE (occurrence: DE)
  Receive Date: 20180314
  Receipt Date: 20180314
  Transmission Date: 20180509
  Serious: Yes (Hospitalization)
  Sender: FDA-Public Use
  Company Number: DE-ROCHE-2084561

PATIENT
  Age: 56 Year
  Sex: Female
  Weight: 73 kg

DRUGS (3)
  1. GEMCITABINE [Suspect]
     Active Substance: GEMCITABINE\GEMCITABINE HYDROCHLORIDE
     Indication: OVARIAN CANCER
     Dosage: MOST RECENT DOSE ON 04/AUG/2014
     Route: 042
     Dates: start: 20140402
  2. BEVACIZUMAB. [Suspect]
     Active Substance: BEVACIZUMAB
     Indication: OVARIAN CANCER
     Dosage: MOST RECENT DOSE ON 27/OCT/2014
     Route: 042
     Dates: start: 20140402
  3. CARBOPLATIN. [Suspect]
     Active Substance: CARBOPLATIN
     Indication: OVARIAN CANCER
     Dosage: DOSE 4 AUC?MOST RECENT DOSE OF CARBOPLATIN RECEIVED ON 28/JUL/2014
     Route: 042
     Dates: start: 20140402

REACTIONS (1)
  - Disease progression [Recovered/Resolved]

NARRATIVE: CASE EVENT DATE: 20141117
